FAERS Safety Report 6627679-8 (Version None)
Quarter: 2010Q1

REPORT INFORMATION
  Report Type: 
  Country: None (occurrence: None)
  Receive Date: 20100311
  Receipt Date: 20100304
  Transmission Date: 20100710
  Serious: Yes (Death)
  Sender: FDA-Public Use
  Company Number: JP-BRISTOL-MYERS SQUIBB COMPANY-15004419

PATIENT

DRUGS (1)
  1. HYDREA [Suspect]
     Route: 048

REACTIONS (1)
  - CARDIAC ARREST [None]
